FAERS Safety Report 6359709-5 (Version None)
Quarter: 2009Q3

REPORT INFORMATION
  Report Type: 
  Country: None (occurrence: None)
  Receive Date: 20090917
  Receipt Date: 20090904
  Transmission Date: 20100115
  Serious: Yes (Death)
  Sender: FDA-Public Use
  Company Number: JP-PFIZER INC-2009254814

PATIENT
  Age: 57 Year

DRUGS (4)
  1. SUNITINIB MALATE [Suspect]
     Indication: RENAL CELL CARCINOMA
     Dosage: 37.5 MG, 1X/DAY
     Route: 048
     Dates: start: 20090519, end: 20090803
  2. THYRADIN S [Concomitant]
     Dosage: UNK
     Route: 048
     Dates: start: 20090602, end: 20090802
  3. PRIMPERAN [Concomitant]
     Dosage: UNK
     Route: 048
     Dates: start: 20090602, end: 20090802
  4. LOPEMIN [Concomitant]
     Dosage: UNK
     Route: 048
     Dates: start: 20090727, end: 20090802

REACTIONS (1)
  - DEATH [None]
